FAERS Safety Report 26142640 (Version 2)
Quarter: 2025Q4

REPORT INFORMATION
  Report Type: Spontaneous
  Country: EU (occurrence: EU)
  Receive Date: 20251211
  Receipt Date: 20251217
  Transmission Date: 20260117
  Serious: Yes (Hospitalization, Other)
  Sender: ABBVIE
  Company Number: EU-ABBVIE-6583016

PATIENT
  Age: 59 Year
  Sex: Female

DRUGS (1)
  1. ELAHERE [Suspect]
     Active Substance: MIRVETUXIMAB SORAVTANSINE-GYNX
     Indication: Product used for unknown indication
     Dosage: DOSAGE: 5 MG/ML
     Route: 042
     Dates: start: 202506

REACTIONS (8)
  - Urinary tract infection [Recovered/Resolved]
  - Fatigue [Unknown]
  - Anaemia [Recovered/Resolved]
  - Hypokalaemia [Recovered/Resolved]
  - Nausea [Unknown]
  - Lymphoedema [Unknown]
  - Metastasis [Unknown]
  - Vomiting [Unknown]

NARRATIVE: CASE EVENT DATE: 20250701
